FAERS Safety Report 15796536 (Version 2)
Quarter: 2019Q2

REPORT INFORMATION
  Report Type: Spontaneous
  Country: US (occurrence: US)
  Receive Date: 20190108
  Receipt Date: 20190502
  Transmission Date: 20190711
  Serious: Yes (Other)
  Sender: FDA-Public Use
  Company Number: US-CIPLA LTD.-2019US00009

PATIENT

DRUGS (4)
  1. TRAZODONE [Concomitant]
     Active Substance: TRAZODONE HYDROCHLORIDE
     Indication: SLEEP DISORDER
     Dosage: 100 MILLIGRAM, QD (AT BED TIME)
     Route: 065
     Dates: start: 20181129
  2. GABAPENTIN. [Suspect]
     Active Substance: GABAPENTIN
     Indication: PERIPHERAL SENSORY NEUROPATHY
     Dosage: 300 MILLIGRAM, QD (AT BED TIME)
     Route: 048
     Dates: start: 20181218
  3. TRAZODONE [Concomitant]
     Active Substance: TRAZODONE HYDROCHLORIDE
     Indication: AFFECTIVE DISORDER
  4. DOXYCYCLINE. [Concomitant]
     Active Substance: DOXYCYCLINE
     Indication: ROSACEA
     Dosage: 20 MILLIGRAM, BID (FOR YEARS)
     Route: 048

REACTIONS (2)
  - Drug ineffective for unapproved indication [Unknown]
  - Off label use [Unknown]

NARRATIVE: CASE EVENT DATE: 201812
